FAERS Safety Report 15889377 (Version 2)
Quarter: 2019Q2

REPORT INFORMATION
  Report Type: Report from Study
  Country: JP (occurrence: JP)
  Receive Date: 20190130
  Receipt Date: 20190628
  Transmission Date: 20190711
  Serious: Yes (Hospitalization)
  Sender: FDA-Public Use
  Company Number: JP-BIOGEN-2019BI00680735

PATIENT
  Age: 35 Year
  Sex: Male
  Weight: 57.8 kg

DRUGS (9)
  1. MIYA-BM [Concomitant]
     Active Substance: CLOSTRIDIUM BUTYRICUM SPORES STRAIN M-55
     Indication: ANXIETY
     Route: 065
  2. SPINRAZA [Suspect]
     Active Substance: NUSINERSEN
     Indication: SPINAL MUSCULAR ATROPHY
     Route: 050
     Dates: start: 20181129, end: 20181129
  3. MEILAX [Concomitant]
     Active Substance: ETHYL LOFLAZEPATE
     Dosage: BEFORE FALLING ASLEEP
     Route: 050
  4. JZOLOFT OD [Concomitant]
     Active Substance: SERTRALINE HYDROCHLORIDE
     Route: 050
  5. SULPIRIDE [Concomitant]
     Active Substance: SULPIRIDE
     Indication: ANXIETY
     Route: 065
  6. EPHEDRIN [Concomitant]
     Active Substance: EPHEDRINE HYDROCHLORIDE
     Route: 065
  7. SPINRAZA [Suspect]
     Active Substance: NUSINERSEN
     Route: 050
     Dates: start: 20181227, end: 20181227
  8. ETIZOLAM [Concomitant]
     Active Substance: ETIZOLAM
     Indication: ANXIETY
     Dosage: AS NEEDED
     Route: 050
  9. ZOLPIDEM TARTRATE. [Concomitant]
     Active Substance: ZOLPIDEM TARTRATE
     Indication: ANXIETY
     Route: 065

REACTIONS (4)
  - Anxiety [Unknown]
  - Headache [Recovered/Resolved]
  - Depression [Unknown]
  - Panic disorder [Not Recovered/Not Resolved]

NARRATIVE: CASE EVENT DATE: 20181201
